FAERS Safety Report 24641670 (Version 1)
Quarter: 2024Q4

REPORT INFORMATION
  Report Type: Spontaneous
  Country: US (occurrence: None)
  Receive Date: 20241120
  Receipt Date: 20241120
  Transmission Date: 20250115
  Serious: Yes (Hospitalization)
  Sender: Public
  Company Number: None

PATIENT
  Age: 85 Year
  Sex: Male
  Weight: 87.9 kg

DRUGS (11)
  1. LUTETIUM OXODOTREOTIDE LU-177 [Suspect]
     Active Substance: LUTETIUM OXODOTREOTIDE LU-177
  2. ASPIRIN [Suspect]
     Active Substance: ASPIRIN
  3. CLOPIDOGREL [Suspect]
     Active Substance: CLOPIDOGREL BISULFATE
  4. ATORVASTATIN CALCIUM [Concomitant]
     Active Substance: ATORVASTATIN CALCIUM
  5. CLOPIDOGREL BISULFATE [Concomitant]
     Active Substance: CLOPIDOGREL BISULFATE
  6. FINASTERIDE [Concomitant]
     Active Substance: FINASTERIDE
  7. LANREOTIDE [Concomitant]
     Active Substance: LANREOTIDE
  8. MINERALS\VITAMINS [Concomitant]
     Active Substance: MINERALS\VITAMINS
  9. NITROGLYCERIN [Concomitant]
     Active Substance: NITROGLYCERIN
  10. OMEPRAZOLE [Concomitant]
     Active Substance: OMEPRAZOLE
  11. ONDANSETRON [Concomitant]
     Active Substance: ONDANSETRON

REACTIONS (10)
  - Syncope [None]
  - Haematuria [None]
  - Anaemia [None]
  - Transfusion [None]
  - Device dislocation [None]
  - Complication associated with device [None]
  - Haemorrhage [None]
  - Blood pressure systolic increased [None]
  - Blood pressure diastolic decreased [None]
  - Blood creatinine increased [None]

NARRATIVE: CASE EVENT DATE: 20241114
